FAERS Safety Report 12767466 (Version 1)
Quarter: 2016Q3

REPORT INFORMATION
  Report Type: Spontaneous
  Country: US (occurrence: US)
  Receive Date: 20160921
  Receipt Date: 20160921
  Transmission Date: 20161109
  Serious: Yes (Other)
  Sender: FDA-Public Use
  Company Number: None

PATIENT
  Age: 43 Year
  Sex: Female
  Weight: 81 kg

DRUGS (5)
  1. WELLBUTRIN [Concomitant]
     Active Substance: BUPROPION HYDROCHLORIDE
  2. ARIPIPRAZOLE TRIGEN [Suspect]
     Active Substance: ARIPIPRAZOLE
     Indication: DEPRESSION
     Dosage: 1 TABLET ORAL
     Route: 048
     Dates: start: 20150701, end: 20160901
  3. PREVICID [Concomitant]
  4. PROBIOTICS [Concomitant]
     Active Substance: PROBIOTICS NOS
  5. CYMBALTA [Concomitant]
     Active Substance: DULOXETINE HYDROCHLORIDE

REACTIONS (9)
  - Drug withdrawal syndrome [None]
  - Diarrhoea [None]
  - Crying [None]
  - Restless legs syndrome [None]
  - Fatigue [None]
  - Muscle tightness [None]
  - Mood altered [None]
  - Tremor [None]
  - Depression [None]

NARRATIVE: CASE EVENT DATE: 20160901
